FAERS Safety Report 11490686 (Version 1)
Quarter: 2015Q3

REPORT INFORMATION
  Report Type: Spontaneous
  Country: US (occurrence: US)
  Receive Date: 20150910
  Receipt Date: 20150910
  Transmission Date: 20151125
  Serious: Yes (Other)
  Sender: FDA-Public Use
  Company Number: US-JNJFOC-20150903327

PATIENT
  Age: 65 Year
  Sex: Female
  Weight: 83.01 kg

DRUGS (2)
  1. XARELTO [Suspect]
     Active Substance: RIVAROXABAN
     Indication: DEEP VEIN THROMBOSIS
     Route: 048
     Dates: start: 201411
  2. DILANTIN [Concomitant]
     Active Substance: PHENYTOIN
     Indication: ARTERIOVENOUS MALFORMATION
     Dosage: 100 MG 3 CAPSULES ONCE A DAY
     Route: 048
     Dates: start: 1987

REACTIONS (5)
  - Diverticulitis [Recovered/Resolved]
  - Ligament sprain [Not Recovered/Not Resolved]
  - Musculoskeletal pain [Not Recovered/Not Resolved]
  - Muscle strain [Not Recovered/Not Resolved]
  - Large intestine polyp [Recovered/Resolved]

NARRATIVE: CASE EVENT DATE: 20150719
